FAERS Safety Report 20153168 (Version 2)
Quarter: 2021Q4

REPORT INFORMATION
  Report Type: Report from Study
  Country: AU (occurrence: AU)
  Receive Date: 20211206
  Receipt Date: 20211212
  Transmission Date: 20220303
  Serious: Yes (Other)
  Sender: FDA-Public Use
  Company Number: AU-NALPROPION PHARMACEUTICALS INC.-2021-014536

PATIENT

DRUGS (8)
  1. CONTRAVE [Suspect]
     Active Substance: BUPROPION HYDROCHLORIDE\NALTREXONE HYDROCHLORIDE
     Indication: Weight control
     Dosage: UNK
     Route: 065
     Dates: start: 20211113
  2. CONTRAVE [Suspect]
     Active Substance: BUPROPION HYDROCHLORIDE\NALTREXONE HYDROCHLORIDE
     Dosage: 1 DOSAGE FORM, BID
     Route: 065
  3. CONTRAVE [Suspect]
     Active Substance: BUPROPION HYDROCHLORIDE\NALTREXONE HYDROCHLORIDE
     Dosage: 2 DOSAGE FORM, BID (2 MANE, 2 NOCTE)
     Route: 065
  4. ACETAMINOPHEN\CODEINE\DOXYLAMINE SUCCINATE [Suspect]
     Active Substance: ACETAMINOPHEN\CODEINE\DOXYLAMINE SUCCINATE
     Indication: Spinal pain
     Dosage: AS REQUIRED
     Route: 065
  5. FLUOXETINE [Suspect]
     Active Substance: FLUOXETINE HYDROCHLORIDE
     Indication: Product used for unknown indication
     Dosage: 20 MG
     Route: 065
  6. PROPANOLOL                         /00030001/ [Concomitant]
     Indication: Anxiety
     Dosage: 40-60 MG, PRN, QD
  7. ATIVAN [Concomitant]
     Active Substance: LORAZEPAM
     Indication: Anxiety
     Dosage: 0.5 MG, BID
  8. VOLTAREN                           /00372301/ [Concomitant]
     Indication: Spinal pain
     Dosage: 100 MG, PRN

REACTIONS (8)
  - Pruritus [Recovered/Resolved]
  - Depressed mood [Not Recovered/Not Resolved]
  - Tearfulness [Unknown]
  - Labelled drug-drug interaction medication error [Unknown]
  - Contraindicated product prescribed [Unknown]
  - Product dose omission issue [Unknown]
  - Drug titration error [Unknown]
  - Drug ineffective [Unknown]
